FAERS Safety Report 5317236-8 (Version None)
Quarter: 2007Q2

REPORT INFORMATION
  Report Type: 
  Country: None (occurrence: None)
  Receive Date: 20070504
  Receipt Date: 20070501
  Transmission Date: 20071010
  Serious: Yes (Life-Threatening, Hospitalization)
  Sender: FDA-Public Use
  Company Number: US-BOEHRINGER INGELHEIM PHARMACEUTICALS, INC.-2007-BP-02663BP

PATIENT
  Age: 58 Year
  Sex: Male
  Weight: 70 kg

DRUGS (13)
  1. SPIRIVA [Suspect]
     Indication: CHRONIC OBSTRUCTIVE PULMONARY DISEASE
     Route: 055
     Dates: start: 20061005, end: 20061017
  2. ASMANEX TWISTHALER [Suspect]
     Indication: CHRONIC OBSTRUCTIVE PULMONARY DISEASE
     Dates: start: 20061005, end: 20061018
  3. OXYCODONE AND ACETAMINOPHEN [Concomitant]
     Dates: start: 20061005, end: 20061104
  4. ALBUTEROL [Concomitant]
     Route: 055
     Dates: start: 20050909, end: 20061117
  5. ASPIRIN [Concomitant]
     Dates: start: 20010109
  6. CITALOPRAM HYDROBROMIDE [Concomitant]
     Dates: start: 20050614
  7. DOCUSATE [Concomitant]
     Dates: start: 20061005, end: 20061104
  8. FLUNISOLIDE [Concomitant]
     Dates: start: 20050923, end: 20061104
  9. LISINOPRIL [Concomitant]
     Dates: start: 20001102
  10. LORAZEPAM [Concomitant]
     Dates: start: 20050705
  11. MORPHINE SULFATE [Concomitant]
     Dates: start: 20020611
  12. OMEPRAZOLE [Concomitant]
     Dates: start: 20031219
  13. RANITIDINE [Concomitant]
     Dates: start: 20010125

REACTIONS (3)
  - CHEST PAIN [None]
  - COSTOCHONDRITIS [None]
  - ELECTROCARDIOGRAM QT PROLONGED [None]
